FAERS Safety Report 9316521 (Version 1)
Quarter: 2013Q2

REPORT INFORMATION
  Report Type: Spontaneous
  Country: US (occurrence: None)
  Receive Date: 20130528
  Receipt Date: 20130528
  Transmission Date: 20140414
  Serious: Yes (Other)
  Sender: FDA-Public Use
  Company Number: None

PATIENT
  Age: 53 Year
  Sex: Female
  Weight: 127.01 kg

DRUGS (1)
  1. ROPINIROLE [Suspect]
     Indication: RESTLESS LEGS SYNDROME
     Dosage: 3 MG TAKE 2 1 HR BEFORE BED
     Route: 048
     Dates: start: 20080101, end: 20130310

REACTIONS (10)
  - Diplopia [None]
  - Dysarthria [None]
  - Road traffic accident [None]
  - Fatigue [None]
  - Sleep disorder [None]
  - Stress [None]
  - Drug ineffective [None]
  - Pathological gambling [None]
  - Disturbance in attention [None]
  - Memory impairment [None]
